FAERS Safety Report 9922122 (Version 3)
Quarter: 2014Q2

REPORT INFORMATION
  Report Type: Spontaneous
  Country: FI (occurrence: FI)
  Receive Date: 20140225
  Receipt Date: 20140409
  Transmission Date: 20141212
  Serious: Yes (Death, Hospitalization)
  Sender: FDA-Public Use
  Company Number: FI-ABBVIE-14P-055-1197064-00

PATIENT
  Age: 34 Year
  Sex: Female

DRUGS (5)
  1. VALPROIC ACID [Suspect]
     Indication: EPILEPSY
     Route: 048
     Dates: start: 201304, end: 20131111
  2. VALPROIC ACID [Suspect]
     Route: 048
     Dates: start: 20131111, end: 20131129
  3. TRASTUZUMAB EMTANSINE [Suspect]
     Indication: BREAST CANCER METASTATIC
     Route: 042
     Dates: start: 20130205, end: 20130416
  4. LEVETIRACETAM [Concomitant]
     Indication: PRODUCT USED FOR UNKNOWN INDICATION
     Dates: start: 20131111, end: 20131129
  5. METOCLOPRAMIDE HYDROCHLORIDE [Concomitant]
     Indication: PRODUCT USED FOR UNKNOWN INDICATION
     Dates: start: 20131129, end: 20131203

REACTIONS (2)
  - Coma hepatic [Fatal]
  - Hepatotoxicity [Fatal]
